FAERS Safety Report 7068590-0 (Version None)
Quarter: 2010Q4

REPORT INFORMATION
  Report Type: 
  Country: None (occurrence: None)
  Receive Date: 20101028
  Receipt Date: 20101019
  Transmission Date: 20110411
  Serious: Yes (Other)
  Sender: FDA-Public Use
  Company Number: US-JNJFOC-20101006577

PATIENT
  Sex: Male
  Weight: 52.16 kg

DRUGS (1)
  1. TOPAMAX [Suspect]
     Indication: CONVULSION
     Route: 048

REACTIONS (6)
  - CONTUSION [None]
  - CONVULSION [None]
  - FALL [None]
  - SKIN LACERATION [None]
  - SPINAL CORD OEDEMA [None]
  - THERAPY CESSATION [None]
